FAERS Safety Report 4287974-7 (Version None)
Quarter: 2004Q1

REPORT INFORMATION
  Report Type: 
  Country: None (occurrence: None)
  Receive Date: 20040205
  Receipt Date: 20040120
  Transmission Date: 20041129
  Serious: Yes (Hospitalization)
  Sender: FDA-Public Use
  Company Number: DSA_23917_2004

PATIENT
  Age: 71 Year
  Sex: Male

DRUGS (12)
  1. TEMESTA [Suspect]
     Indication: COMPUTERISED TOMOGRAM
     Dosage: 1 TAB QD PO
     Route: 048
  2. ACETYLCYSTEINE [Suspect]
     Dosage: 2 G ONCE IV
     Route: 042
     Dates: start: 20030328, end: 20030328
  3. MOPRAL [Suspect]
     Dosage: 20 MG QD PO
     Route: 048
     Dates: start: 20030326
  4. SINTROM [Suspect]
     Dosage: 4 MG QD PO
     Route: 048
     Dates: start: 20030326
  5. XENETIX [Suspect]
     Indication: PREMEDICATION
     Dosage: 130 ML ONCE IV
     Route: 042
     Dates: start: 20030328, end: 20030328
  6. ZYLORIC [Suspect]
     Dosage: 300 MG BID PO
     Route: 048
     Dates: start: 20030325
  7. ALDALIX [Concomitant]
  8. SOLUPRED [Concomitant]
  9. FLUCONAZOLE [Concomitant]
  10. IMOVANE [Concomitant]
  11. ATARAX [Concomitant]
  12. HYPOSTAMINE [Concomitant]

REACTIONS (2)
  - ERYTHEMA [None]
  - POST PROCEDURAL COMPLICATION [None]
